FAERS Safety Report 6434529-1 (Version None)
Quarter: 2009Q4

REPORT INFORMATION
  Report Type: 
  Country: None (occurrence: None)
  Receive Date: 20091110
  Receipt Date: 20091105
  Transmission Date: 20100525
  Serious: Yes (Hospitalization)
  Sender: FDA-Public Use
  Company Number: IT-ASTRAZENECA-2009SE13525

PATIENT
  Age: 22729 Day
  Sex: Female

DRUGS (5)
  1. SEROQUEL [Suspect]
     Route: 048
     Dates: start: 20080811, end: 20090811
  2. SEROQUEL [Suspect]
     Route: 048
     Dates: start: 20080811, end: 20090811
  3. LACTULOSE [Concomitant]
     Dosage: 2 TABLESPOON DAILY
  4. VALIUM [Concomitant]
     Dosage: AS REQUIRED
  5. PROTON PUMP INHIBITORS [Concomitant]

REACTIONS (1)
  - GASTROINTESTINAL HYPOMOTILITY [None]
